FAERS Safety Report 12220433 (Version 2)
Quarter: 2016Q2

REPORT INFORMATION
  Report Type: Spontaneous
  Country: US (occurrence: US)
  Receive Date: 20160330
  Receipt Date: 20160623
  Transmission Date: 20160815
  Serious: Yes (Death, Hospitalization)
  Sender: FDA-Public Use
  Company Number: US-ROCHE-1733543

PATIENT
  Age: 52 Year
  Sex: Male

DRUGS (15)
  1. LATANOPROST. [Concomitant]
     Active Substance: LATANOPROST
  2. SUCRALFATE. [Concomitant]
     Active Substance: SUCRALFATE
  3. SYMBICORT [Concomitant]
     Active Substance: BUDESONIDE\FORMOTEROL FUMARATE DIHYDRATE
  4. ATORVASTATIN [Concomitant]
     Active Substance: ATORVASTATIN
  5. LASIX [Concomitant]
     Active Substance: FUROSEMIDE
  6. BENZONATATE. [Concomitant]
     Active Substance: BENZONATATE
  7. METOPROLOL. [Concomitant]
     Active Substance: METOPROLOL
  8. ESBRIET [Suspect]
     Active Substance: PIRFENIDONE
     Indication: IDIOPATHIC PULMONARY FIBROSIS
     Route: 048
     Dates: start: 20150422
  9. LOSARTAN. [Concomitant]
     Active Substance: LOSARTAN
  10. GABAPENTIN. [Concomitant]
     Active Substance: GABAPENTIN
  11. ZETIA [Concomitant]
     Active Substance: EZETIMIBE
  12. DULOXETINE. [Concomitant]
     Active Substance: DULOXETINE
  13. AMLODIPINE [Concomitant]
     Active Substance: AMLODIPINE BESYLATE
  14. AMBIEN [Concomitant]
     Active Substance: ZOLPIDEM TARTRATE
  15. PROTONIX (OMEPRAZOLE) [Concomitant]

REACTIONS (2)
  - Dyspnoea [Unknown]
  - Death [Fatal]

NARRATIVE: CASE EVENT DATE: 20160620
